FAERS Safety Report 9841591 (Version 1)
Quarter: 2013Q4

REPORT INFORMATION
  Report Type: Spontaneous
  Country: US (occurrence: None)
  Receive Date: 20131219
  Receipt Date: 20131219
  Transmission Date: 20140711
  Serious: Yes (Other)
  Sender: FDA-Public Use
  Company Number: 163-20785-12112740

PATIENT
  Age: 59 Year
  Sex: Male
  Weight: 64.41 kg

DRUGS (14)
  1. THALOMID [Suspect]
     Indication: PLASMA CELL MYELOMA
     Route: 048
     Dates: start: 20120327
  2. METOPROLOL ER (METOPROLOL SUCCINATE) [Concomitant]
  3. MELPHALAN (MELPHALAN) [Concomitant]
  4. CYCLOBENZAPRINE (CYCLOBENZAPRINE) [Concomitant]
  5. OXYCODONE/APAP (OXYCODONE/APAP) [Concomitant]
  6. ACYCLOVIR (ACICLOVIR) (ACICLOVIR) [Concomitant]
  7. ALLOPURINOL (ALLOPURINOL) [Concomitant]
  8. MEGESTROL (MEGRESTROL) [Concomitant]
  9. DEXAMETHASONE (DEXAMETHASONE) [Concomitant]
  10. ASPIRIN (ACETYLSALICYLIC ACID) [Concomitant]
  11. OXYCODONE CR (OXYCODONE) [Concomitant]
  12. POLYETHYLENE GLYCOL 3350 (MACROGOL 3350) [Concomitant]
  13. RENAL CAPS (NEPHROVITE) [Concomitant]
  14. MAGNESIUM (MAGNESIUM) [Concomitant]

REACTIONS (1)
  - Pancytopenia [None]
